FAERS Safety Report 23271989 (Version 1)
Quarter: 2023Q4

REPORT INFORMATION
  Report Type: Spontaneous
  Country: DE (occurrence: DE)
  Receive Date: 20231207
  Receipt Date: 20231207
  Transmission Date: 20240109
  Serious: Yes (Hospitalization)
  Sender: FDA-Public Use
  Company Number: DE-SAMSUNG BIOEPIS-SB-2023-30612

PATIENT
  Age: 73 Year
  Sex: Male
  Weight: 87.1 kg

DRUGS (9)
  1. OXALIPLATIN [Suspect]
     Active Substance: OXALIPLATIN
     Indication: Oesophageal adenocarcinoma
     Dosage: 85 MILLIGRAM/SQ. METER (85 MG/M2 IV D1/D15/D29 AND D43 PRE AND POST OP).
     Route: 042
  2. DOCETAXEL [Suspect]
     Active Substance: DOCETAXEL\DOCETAXEL ANHYDROUS
     Indication: Oesophageal adenocarcinoma
     Dosage: 50 MILLIGRAM/SQ. METER (50 MG/M2 IV D1/D15/D29 AND D43 PRE AND POST OP)
     Route: 042
  3. FLUOROURACIL [Suspect]
     Active Substance: FLUOROURACIL
     Indication: Oesophageal adenocarcinoma
     Dosage: 2600 MILLIGRAM/SQ. METER (2600 MG/M2 IV D1/D15/D29 AND D43 PRE AND POST OP)
     Route: 042
  4. LEUCOVORIN [Suspect]
     Active Substance: LEUCOVORIN\LEUCOVORIN CALCIUM
     Indication: Oesophageal adenocarcinoma
     Dosage: 200 MILLIGRAM/SQ. METER (200 MG/M2 IV D1/D15/D29 AND D 43 PRE AND POST OP)
     Route: 042
  5. ONTRUZANT [Suspect]
     Active Substance: TRASTUZUMAB-DTTB
     Indication: Oesophageal adenocarcinoma
     Dosage: 6 MILLIGRAM/KILOGRAM Q3W (AFTERWARDS 6 MG/KG IV D1 Q3W)
     Route: 042
  6. ONTRUZANT [Suspect]
     Active Substance: TRASTUZUMAB-DTTB
     Dosage: 6 MILLIGRAM/KILOGRAM (D22/D43 PRE AND POST OP)
     Route: 042
  7. ONTRUZANT [Suspect]
     Active Substance: TRASTUZUMAB-DTTB
     Dosage: 8 MILLIGRAM/KILOGRAM (D1 8 MG/KG)
     Route: 042
  8. PEMBROLIZUMAB [Suspect]
     Active Substance: PEMBROLIZUMAB
     Indication: Oesophageal adenocarcinoma
     Dosage: 200 MILLIGRAM (200 MG FLAT DOSE IV D1/D22/D43 PRE AND POST OP)
     Route: 042
  9. PEMBROLIZUMAB [Suspect]
     Active Substance: PEMBROLIZUMAB
     Dosage: 200 MILLIGRAM, Q3W (AFTERWARDS D1 Q3W)
     Route: 042

REACTIONS (2)
  - Anaemia [Not Recovered/Not Resolved]
  - Product use in unapproved indication [Unknown]

NARRATIVE: CASE EVENT DATE: 20231109
